FAERS Safety Report 4939079-7 (Version None)
Quarter: 2006Q1

REPORT INFORMATION
  Report Type: 
  Country: None (occurrence: None)
  Receive Date: 20060306
  Receipt Date: 20060226
  Transmission Date: 20060701
  Serious: Yes (Other)
  Sender: FDA-Public Use
  Company Number: 2006027468

PATIENT
  Age: 44 Year
  Sex: Female
  Weight: 41.7309 kg

DRUGS (2)
  1. LISTERINE (MENTHOL, METHYL SALICYLATE, EUCALIPTOL, THYMOL) [Suspect]
     Indication: ALCOHOL USE
     Dosage: 1 LITER, ORAL
     Route: 048
     Dates: start: 20060201, end: 20060201
  2. VICODIN [Suspect]
     Indication: FRACTURE
     Dosage: ORAL
     Route: 048
     Dates: start: 20060101

REACTIONS (4)
  - ALCOHOL PROBLEM [None]
  - DYSARTHRIA [None]
  - INTENTIONAL DRUG MISUSE [None]
  - OFF LABEL USE [None]
